FAERS Safety Report 9704834 (Version 1)
Quarter: 2013Q4

REPORT INFORMATION
  Report Type: Spontaneous
  Country: IT (occurrence: IT)
  Receive Date: 20131122
  Receipt Date: 20131122
  Transmission Date: 20140711
  Serious: Yes (Hospitalization)
  Sender: FDA-Public Use
  Company Number: IT-SA-2013SA118610

PATIENT
  Age: 89 Year
  Sex: Male

DRUGS (7)
  1. PLAVIX [Suspect]
     Indication: ATRIAL FIBRILLATION
     Route: 048
     Dates: start: 20130701, end: 20130801
  2. TORVAST [Concomitant]
     Route: 048
  3. TRIATEC [Concomitant]
     Dosage: STRENGTH: 2.5 MG
     Route: 048
  4. CONGESCOR [Concomitant]
     Dosage: STRENGTH: 2.5 MG
     Route: 048
  5. TAVOR [Concomitant]
     Route: 048
  6. LUVION [Concomitant]
     Route: 048
  7. LANSOX [Concomitant]
     Dosage: STRENGTH: 30 MG
     Route: 048

REACTIONS (2)
  - Dyspnoea [Unknown]
  - Haemoptysis [Unknown]
